FAERS Safety Report 7368637-8 (Version None)
Quarter: 2011Q1

REPORT INFORMATION
  Report Type: 
  Country: None (occurrence: None)
  Receive Date: 20110308
  Receipt Date: 20110222
  Transmission Date: 20110831
  Serious: Yes (Disabling)
  Sender: FDA-Public Use
  Company Number: 2011SP008399

PATIENT
  Age: 51 Year
  Sex: Female

DRUGS (2)
  1. RIBAVIRIN [Suspect]
     Indication: HEPATITIS C
     Dosage: PO
     Route: 048
     Dates: start: 20070909, end: 20080220
  2. PEGASYS [Suspect]
     Indication: HEPATITIS C
     Dates: start: 20070909, end: 20080920

REACTIONS (26)
  - MENTAL DISORDER [None]
  - TOOTH LOSS [None]
  - PSYCHOTIC DISORDER [None]
  - SENSORY DISTURBANCE [None]
  - METABOLIC DISORDER [None]
  - HALLUCINATION [None]
  - PAIN [None]
  - MYXOEDEMA [None]
  - SLEEP DISORDER [None]
  - MANIA [None]
  - RESTLESSNESS [None]
  - MUSCULOSKELETAL PAIN [None]
  - CHEST PAIN [None]
  - MALAISE [None]
  - TOOTH INFECTION [None]
  - HEPATIC STEATOSIS [None]
  - BLOOD TEST ABNORMAL [None]
  - IMPAIRED WORK ABILITY [None]
  - PARAESTHESIA [None]
  - PERIODONTITIS [None]
  - OROPHARYNGEAL PAIN [None]
  - TINNITUS [None]
  - HEADACHE [None]
  - DRUG INEFFECTIVE [None]
  - VISUAL IMPAIRMENT [None]
  - DIZZINESS [None]
